FAERS Safety Report 5983117-X (Version None)
Quarter: 2008Q4

REPORT INFORMATION
  Report Type: 
  Country: None (occurrence: None)
  Receive Date: 20081208
  Receipt Date: 20081124
  Transmission Date: 20090506
  Serious: Yes (Other)
  Sender: FDA-Public Use
  Company Number: US-BAUSCH-2008BL004985

PATIENT
  Age: 49 Year
  Sex: Male

DRUGS (8)
  1. BRIMONIDINE [Suspect]
     Indication: OCULAR HYPERTENSION
     Route: 047
     Dates: start: 20070324, end: 20070516
  2. BRIMONIDINE [Suspect]
     Route: 047
     Dates: start: 20070523
  3. TIMOLOL [Suspect]
     Indication: OCULAR HYPERTENSION
     Route: 047
     Dates: start: 20000924
  4. DORZOLAMIDE W/TIMOLOL [Suspect]
     Indication: OCULAR HYPERTENSION
     Route: 047
     Dates: start: 20000924, end: 20000924
  5. APRACLONIDINE [Suspect]
     Indication: OCULAR HYPERTENSION
     Route: 047
     Dates: start: 20000924, end: 20000924
  6. APRACLONIDINE [Suspect]
     Route: 047
     Dates: start: 20070324, end: 20070324
  7. TRAVOPROST [Suspect]
     Indication: OCULAR HYPERTENSION
     Route: 047
     Dates: start: 20070324, end: 20070516
  8. TRAVOPROST [Suspect]
     Route: 047
     Dates: start: 20070523, end: 20070910

REACTIONS (5)
  - IRIS CONVEX [None]
  - MACULOPATHY [None]
  - RETINAL DETACHMENT [None]
  - RETINAL DISORDER [None]
  - RETINAL PIGMENT EPITHELIOPATHY [None]
